FAERS Safety Report 7657119-1 (Version None)
Quarter: 2011Q3

REPORT INFORMATION
  Report Type: 
  Country: None (occurrence: None)
  Receive Date: 20110804
  Receipt Date: 20110216
  Transmission Date: 20111222
  Serious: No
  Sender: FDA-Public Use
  Company Number: US-GLAXOSMITHKLINE-A0913971A

PATIENT
  Age: 60 Year
  Sex: Female

DRUGS (3)
  1. ADVAIR DISKUS 100/50 [Suspect]
     Indication: CHRONIC OBSTRUCTIVE PULMONARY DISEASE
     Dosage: 2PUFF TWICE PER DAY
     Route: 055
     Dates: start: 20090101
  2. ALBUTEROL SULFATE AUTOHALER [Concomitant]
  3. ASPIRIN [Concomitant]

REACTIONS (5)
  - FOREIGN BODY [None]
  - DRUG INEFFECTIVE [None]
  - NON-CARDIAC CHEST PAIN [None]
  - PRODUCT QUALITY ISSUE [None]
  - FOREIGN BODY ASPIRATION [None]
